FAERS Safety Report 6930859-5 (Version None)
Quarter: 2010Q3

REPORT INFORMATION
  Report Type: 
  Country: None (occurrence: None)
  Receive Date: 20100818
  Receipt Date: 20100806
  Transmission Date: 20110219
  Serious: Yes (Other)
  Sender: FDA-Public Use
  Company Number: US-WYE-H16798510

PATIENT
  Sex: Female
  Weight: 54.48 kg

DRUGS (4)
  1. EFFEXOR XR [Suspect]
     Indication: DEPRESSION
     Dates: end: 20100801
  2. EFFEXOR XR [Suspect]
     Indication: ANXIETY
  3. SERAX [Concomitant]
     Dosage: UNKNOWN
  4. PREDNISONE [Suspect]
     Indication: TEMPORAL ARTERITIS
     Dates: start: 20010101, end: 20020101

REACTIONS (10)
  - AMNESIA [None]
  - BODY HEIGHT DECREASED [None]
  - BONE ATROPHY [None]
  - BONE PAIN [None]
  - DIABETES MELLITUS [None]
  - EYE PAIN [None]
  - RED BLOOD CELL SEDIMENTATION RATE INCREASED [None]
  - TEMPORAL ARTERITIS [None]
  - THROMBOSIS [None]
  - WEIGHT INCREASED [None]
